FAERS Safety Report 14362144 (Version 1)
Quarter: 2018Q1

REPORT INFORMATION
  Report Type: Spontaneous
  Country: CR (occurrence: ES)
  Receive Date: 20180108
  Receipt Date: 20180108
  Transmission Date: 20180509
  Serious: Yes (Other)
  Sender: FDA-Public Use
  Company Number: CR-ACCORD-062541

PATIENT
  Age: 55 Year
  Sex: Female

DRUGS (1)
  1. AMLODIPINE [Suspect]
     Active Substance: AMLODIPINE BESYLATE
     Indication: HYPERTENSION

REACTIONS (4)
  - Rash maculo-papular [Recovered/Resolved]
  - Rash pruritic [Recovered/Resolved]
  - Localised oedema [Recovered/Resolved]
  - Hypersensitivity [Recovered/Resolved]
